FAERS Safety Report 13061498 (Version 1)
Quarter: 2016Q4

REPORT INFORMATION
  Report Type: Spontaneous
  Country: US (occurrence: US)
  Receive Date: 20161226
  Receipt Date: 20161226
  Transmission Date: 20170207
  Serious: No
  Sender: FDA-Public Use
  Company Number: US-NOVEN PHARMACEUTICALS, INC.-US2016000035

PATIENT
  Age: 39 Year
  Sex: Female

DRUGS (2)
  1. LUPRON [Concomitant]
     Active Substance: LEUPROLIDE ACETATE
     Indication: PREGNANCY
  2. MINIVELLE [Suspect]
     Active Substance: ESTRADIOL
     Indication: PREGNANCY
     Dosage: 0.2 MG (USING TWO, 0.1MG PATCHES PER DAY), QD
     Route: 062
     Dates: start: 20160108

REACTIONS (6)
  - Drug administration error [Unknown]
  - Wrong technique in product usage process [Not Recovered/Not Resolved]
  - Prescribed overdose [Not Recovered/Not Resolved]
  - Incorrect product storage [Recovered/Resolved]
  - Off label use [Not Recovered/Not Resolved]
  - No adverse event [Unknown]

NARRATIVE: CASE EVENT DATE: 2015
